FAERS Safety Report 12921025 (Version 1)
Quarter: 2016Q4

REPORT INFORMATION
  Report Type: Spontaneous
  Country: US (occurrence: US)
  Receive Date: 20161108
  Receipt Date: 20161108
  Transmission Date: 20170207
  Serious: Yes (Life-Threatening, Hospitalization, Disabling)
  Sender: FDA-Public Use
  Company Number: None

PATIENT
  Age: 60 Year
  Sex: Female
  Weight: 95.26 kg

DRUGS (4)
  1. SEROQUEL [Suspect]
     Active Substance: QUETIAPINE FUMARATE
  2. CLOZARIL [Suspect]
     Active Substance: CLOZAPINE
  3. DEPAKOTE [Suspect]
     Active Substance: DIVALPROEX SODIUM
     Dosage: DEPAKOTE 1000 MG PILLS (HARD) - FREQUENCY + ROUTE - ILLEGIBLE
  4. ZYPREXA [Suspect]
     Active Substance: OLANZAPINE

REACTIONS (5)
  - Weight increased [None]
  - Myalgia [None]
  - Gallbladder disorder [None]
  - Arthropathy [None]
  - Nephrolithiasis [None]
